FAERS Safety Report 5230559-6 (Version None)
Quarter: 2007Q1

REPORT INFORMATION
  Report Type: 
  Country: None (occurrence: None)
  Receive Date: 20070206
  Receipt Date: 20070129
  Transmission Date: 20070707
  Serious: Yes (Hospitalization)
  Sender: FDA-Public Use
  Company Number: JP-GLAXOSMITHKLINE-B0457026A

PATIENT
  Age: 80 Year
  Sex: Male

DRUGS (8)
  1. ZANTAC [Suspect]
     Route: 065
  2. POLARAMINE [Concomitant]
     Route: 065
  3. CODEINE PHOSPHATE [Concomitant]
     Route: 065
  4. ROCORNAL [Concomitant]
     Route: 065
  5. TATHION [Concomitant]
     Route: 065
  6. STRONGER NEO-MINOPHAGEN C [Concomitant]
     Route: 065
  7. GASTROZEPIN [Concomitant]
     Route: 065
  8. CELESTONE [Concomitant]
     Route: 065

REACTIONS (18)
  - BLOOD GLUCOSE INCREASED [None]
  - BLOOD IMMUNOGLOBULIN E INCREASED [None]
  - BLOOD LACTATE DEHYDROGENASE INCREASED [None]
  - C-REACTIVE PROTEIN INCREASED [None]
  - DIABETES MELLITUS [None]
  - DRUG ERUPTION [None]
  - EOSINOPHIL COUNT INCREASED [None]
  - GLUCOSE URINE PRESENT [None]
  - GLYCOSYLATED HAEMOGLOBIN INCREASED [None]
  - HAEMOGLOBIN INCREASED [None]
  - LYMPH NODE PALPABLE [None]
  - LYMPHOCYTE STIMULATION TEST POSITIVE [None]
  - PIGMENTATION DISORDER [None]
  - PNEUMONIA [None]
  - PRURITUS [None]
  - RASH PAPULAR [None]
  - SKIN LESION [None]
  - WHITE BLOOD CELL COUNT INCREASED [None]
